FAERS Safety Report 7025138-4 (Version None)
Quarter: 2010Q3

REPORT INFORMATION
  Report Type: 
  Country: None (occurrence: None)
  Receive Date: 20100916
  Receipt Date: 20100712
  Transmission Date: 20110219
  Serious: Yes (Hospitalization)
  Sender: FDA-Public Use
  Company Number: DKLU1063561

PATIENT
  Age: 19 Year
  Sex: Male

DRUGS (4)
  1. SABRIL [Suspect]
     Indication: PARTIAL SEIZURES
     Dosage: 1000 MG MILLIGRAM(S), 2 IN 1 D, ORAL
     Route: 048
     Dates: start: 20100602, end: 20100711
  2. SABRIL [Suspect]
     Indication: TEMPORAL LOBE EPILEPSY
     Dosage: 1000 MG MILLIGRAM(S), 2 IN 1 D, ORAL
     Route: 048
     Dates: start: 20100602, end: 20100711
  3. COLNAZEPAM (CLONAZEPAM) [Concomitant]
  4. KEPPRA [Concomitant]

REACTIONS (1)
  - CONVULSION [None]
